FAERS Safety Report 23620517 (Version 1)
Quarter: 2024Q1

REPORT INFORMATION
  Report Type: Spontaneous
  Country: ZA (occurrence: ZA)
  Receive Date: 20240312
  Receipt Date: 20240312
  Transmission Date: 20240410
  Serious: Yes (Death)
  Sender: FDA-Public Use
  Company Number: ZA-ABBOTT-2024A-1378722

PATIENT
  Age: 61 Year
  Sex: Male

DRUGS (8)
  1. FENOFIBRATE [Suspect]
     Active Substance: FENOFIBRATE
     Indication: Blood cholesterol abnormal
     Route: 048
     Dates: end: 202401
  2. RIVAROXABAN [Concomitant]
     Active Substance: RIVAROXABAN
     Indication: Anticoagulant therapy
     Route: 048
     Dates: end: 202401
  3. Synaleve [Concomitant]
     Indication: Pain
     Dosage: SYNALEVE (MEPROBAMATE)  TWO EIGHT ?HOURLY AS NEEDED
     Route: 065
     Dates: end: 202401
  4. ZOLPIDEM TARTRATE [Concomitant]
     Active Substance: ZOLPIDEM TARTRATE
     Indication: Insomnia
     Dosage: AT NIGHT
     Route: 048
  5. Tramazac [Concomitant]
     Indication: Pain
     Dosage: 50 MG TWO EVERY 6 HOURS AS NEEDED
     Route: 048
     Dates: end: 202401
  6. PREGABALIN [Concomitant]
     Active Substance: PREGABALIN
     Indication: Pain
     Dosage: WITH A MEAL
     Route: 048
     Dates: end: 202401
  7. ALLOPURINOL [Concomitant]
     Active Substance: ALLOPURINOL
     Indication: Prophylaxis
     Route: 048
     Dates: end: 202401
  8. ERGOCALCIFEROL [Concomitant]
     Active Substance: ERGOCALCIFEROL
     Indication: Product used for unknown indication
     Route: 065
     Dates: end: 202401

REACTIONS (1)
  - Myocardial infarction [Fatal]

NARRATIVE: CASE EVENT DATE: 20240109
